FAERS Safety Report 6004630-5 (Version None)
Quarter: 2008Q4

REPORT INFORMATION
  Report Type: 
  Country: None (occurrence: None)
  Receive Date: 20081216
  Receipt Date: 20081029
  Transmission Date: 20090506
  Serious: No
  Sender: FDA-Public Use
  Company Number: US-BRISTOL-MYERS SQUIBB COMPANY-14389100

PATIENT
  Age: 82 Year
  Sex: Male

DRUGS (6)
  1. PRAVACHOL [Suspect]
  2. MIRALAX [Suspect]
     Route: 048
     Dates: end: 20080615
  3. GLYBURIDE [Concomitant]
  4. AMLODIPINE [Concomitant]
  5. BACLOFEN [Concomitant]
  6. PRAVASTATIN SODIUM [Concomitant]

REACTIONS (2)
  - INTENTIONAL DRUG MISUSE [None]
  - MUSCULAR WEAKNESS [None]
